FAERS Safety Report 10247124 (Version 1)
Quarter: 2014Q2

REPORT INFORMATION
  Report Type: Spontaneous
  Country: JP (occurrence: None)
  Receive Date: 20140617
  Receipt Date: 20140617
  Transmission Date: 20141212
  Serious: Yes (Disabling)
  Sender: FDA-Public Use
  Company Number: 2014-001657

PATIENT
  Age: 85 Year
  Sex: Female

DRUGS (6)
  1. ACTONEL (RISEDRONATE SODIUM) TABLET, 75MG [Suspect]
     Indication: OSTEOPOROSIS
     Route: 048
     Dates: start: 20140123, end: 20140123
  2. ACTONEL (RISEDRONATE SODIUM) TABLET, 75MG [Suspect]
     Indication: MULTIPLE FRACTURES
     Route: 048
     Dates: start: 20140123, end: 20140123
  3. ERGOCALCIFEROL (ERGOCALCIFEROL) [Concomitant]
  4. CALFINA (ALFACALCIDOL) [Concomitant]
  5. RIZE (CLOTIAZEPAM) [Concomitant]
  6. ELCATONIN (ELCATONIN) [Concomitant]

REACTIONS (13)
  - Muscular weakness [None]
  - Abasia [None]
  - Pyrexia [None]
  - Decreased appetite [None]
  - Constipation [None]
  - Fall [None]
  - Haemoglobin decreased [None]
  - Haematocrit decreased [None]
  - Blood lactate dehydrogenase decreased [None]
  - Platelet count increased [None]
  - Glycosylated haemoglobin increased [None]
  - Blood triglycerides increased [None]
  - Overdose [None]
